FAERS Safety Report 6769486-1 (Version None)
Quarter: 2010Q2

REPORT INFORMATION
  Report Type: 
  Country: None (occurrence: None)
  Receive Date: 20100615
  Receipt Date: 20100611
  Transmission Date: 20101027
  Serious: Yes (Other)
  Sender: FDA-Public Use
  Company Number: GB-ROXANE LABORATORIES, INC.-2010-DE-03217GD

PATIENT

DRUGS (2)
  1. ACETAMINOPHEN [Suspect]
  2. METHADONE [Suspect]
     Indication: DRUG DEPENDENCE
     Route: 048

REACTIONS (1)
  - OVERDOSE [None]
